FAERS Safety Report 18011465 (Version 1)
Quarter: 2020Q3

REPORT INFORMATION
  Report Type: Spontaneous
  Country: US (occurrence: US)
  Receive Date: 20200712
  Receipt Date: 20200712
  Transmission Date: 20201103
  Serious: Yes (Other)
  Sender: FDA-Public Use
  Company Number: US-ABBVIE-20K-163-3476835-00

PATIENT
  Age: 67 Year
  Sex: Female

DRUGS (8)
  1. XOPENEX [Concomitant]
     Active Substance: LEVALBUTEROL HYDROCHLORIDE
     Indication: PRODUCT USED FOR UNKNOWN INDICATION
  2. RINVOQ [Suspect]
     Active Substance: UPADACITINIB
     Indication: OSTEOPOROSIS POSTMENOPAUSAL
  3. NAPROXEN. [Concomitant]
     Active Substance: NAPROXEN
     Indication: PRODUCT USED FOR UNKNOWN INDICATION
  4. VITAMIN B12 [Concomitant]
     Active Substance: CYANOCOBALAMIN
     Indication: PRODUCT USED FOR UNKNOWN INDICATION
  5. RINVOQ [Suspect]
     Active Substance: UPADACITINIB
     Indication: RHEUMATOID ARTHRITIS
     Route: 058
     Dates: start: 20191028
  6. OMEPRAZOLE. [Concomitant]
     Active Substance: OMEPRAZOLE
     Indication: PRODUCT USED FOR UNKNOWN INDICATION
  7. ERGOCALCIFEROL. [Concomitant]
     Active Substance: ERGOCALCIFEROL
     Indication: PRODUCT USED FOR UNKNOWN INDICATION
  8. FOLIC ACID. [Concomitant]
     Active Substance: FOLIC ACID
     Indication: PRODUCT USED FOR UNKNOWN INDICATION

REACTIONS (16)
  - Haematocrit decreased [Unknown]
  - Blood immunoglobulin G increased [Unknown]
  - Sinus disorder [Unknown]
  - White matter lesion [Unknown]
  - Electrocardiogram abnormal [Unknown]
  - Hemiplegia [Unknown]
  - High density lipoprotein increased [Unknown]
  - Product dose omission issue [Unknown]
  - Facial paralysis [Unknown]
  - Haemoglobin decreased [Unknown]
  - Red blood cell sedimentation rate increased [Unknown]
  - Cerebral haemorrhage [Unknown]
  - Basal ganglia haemorrhage [Unknown]
  - Basal ganglia infarction [Unknown]
  - Blood immunoglobulin A increased [Unknown]
  - Rash [Unknown]

NARRATIVE: CASE EVENT DATE: 20191120
